FAERS Safety Report 17922638 (Version 1)
Quarter: 2020Q2

REPORT INFORMATION
  Report Type: Spontaneous
  Country: US (occurrence: US)
  Receive Date: 20200622
  Receipt Date: 20200622
  Transmission Date: 20200714
  Serious: Yes (Other)
  Sender: FDA-Public Use
  Company Number: US-ASTELLAS-2020US020837

PATIENT
  Age: 68 Year
  Sex: Male

DRUGS (1)
  1. AMBISOME [Suspect]
     Active Substance: AMPHOTERICIN B
     Indication: BLASTOMYCOSIS
     Dosage: 5 MG/KG, ONCE DAILY (QD)
     Route: 042

REACTIONS (1)
  - Drug ineffective [Unknown]
